FAERS Safety Report 6716729-6 (Version None)
Quarter: 2010Q2

REPORT INFORMATION
  Report Type: 
  Country: None (occurrence: None)
  Receive Date: 20100510
  Receipt Date: 20100503
  Transmission Date: 20101027
  Serious: No
  Sender: FDA-Public Use
  Company Number: US-BIOGENIDEC-2010BI014482

PATIENT
  Age: 53 Year
  Sex: Female

DRUGS (4)
  1. AVONEX [Suspect]
     Indication: MULTIPLE SCLEROSIS
     Route: 030
     Dates: start: 20100416, end: 20100423
  2. AVONEX [Suspect]
     Route: 030
     Dates: start: 20100430
  3. IMITREX [Concomitant]
     Indication: MIGRAINE
  4. SEROQUEL [Concomitant]
     Indication: DEPRESSION

REACTIONS (8)
  - DEPRESSION [None]
  - HYPERHIDROSIS [None]
  - INFLUENZA LIKE ILLNESS [None]
  - INSOMNIA [None]
  - MALAISE [None]
  - MIGRAINE [None]
  - MUSCULAR WEAKNESS [None]
  - VISION BLURRED [None]
